FAERS Safety Report 18932167 (Version 2)
Quarter: 2021Q1

REPORT INFORMATION
  Report Type: Spontaneous
  Country: US (occurrence: US)
  Receive Date: 20210224
  Receipt Date: 20210325
  Transmission Date: 20210420
  Serious: No
  Sender: FDA-Public Use
  Company Number: US-JNJFOC-20210230119

PATIENT
  Sex: Male

DRUGS (6)
  1. INVEGA [Suspect]
     Active Substance: PALIPERIDONE
     Indication: SCHIZOPHRENIA
     Dosage: 10 YEARS AGO
     Route: 048
  2. INVEGA SUSTENNA [Suspect]
     Active Substance: PALIPERIDONE PALMITATE
     Indication: SCHIZOPHRENIA
     Route: 030
  3. HALDOL [Suspect]
     Active Substance: HALOPERIDOL
     Indication: SCHIZOPHRENIA
     Route: 065
  4. KLONOPIN [Concomitant]
     Active Substance: CLONAZEPAM
     Indication: AGITATION
     Route: 065
  5. INVEGA SUSTENNA [Suspect]
     Active Substance: PALIPERIDONE PALMITATE
  6. INVEGA SUSTENNA [Suspect]
     Active Substance: PALIPERIDONE PALMITATE

REACTIONS (5)
  - Product use issue [Unknown]
  - Inappropriate schedule of product administration [Unknown]
  - Off label use [Unknown]
  - Overdose [Unknown]
  - Sedation [Recovered/Resolved]
